FAERS Safety Report 6016150-2 (Version None)
Quarter: 2008Q4

REPORT INFORMATION
  Report Type: 
  Country: None (occurrence: None)
  Receive Date: 20081222
  Receipt Date: 20081121
  Transmission Date: 20090506
  Serious: No
  Sender: FDA-Public Use
  Company Number: JP-PFIZER INC-2008154551

PATIENT

DRUGS (6)
  1. CELECOX [Suspect]
     Dosage: UNK
     Route: 048
     Dates: start: 20080926
  2. THIOLA [Concomitant]
     Dosage: UNK
     Route: 048
     Dates: start: 20070801
  3. FAMOTIDINE [Concomitant]
     Dosage: UNK
     Route: 048
     Dates: start: 20070801
  4. PREDNISOLONE [Concomitant]
     Dosage: UNK
     Route: 048
     Dates: start: 20070801
  5. ALFAROL [Concomitant]
     Dosage: 1 (MCG)/DAY
     Route: 048
     Dates: start: 20070801
  6. ASPARA [Concomitant]
     Dosage: UNK
     Route: 048
     Dates: start: 20070801

REACTIONS (2)
  - VISION BLURRED [None]
  - VISUAL ACUITY REDUCED [None]
